FAERS Safety Report 15424132 (Version 1)
Quarter: 2018Q3

REPORT INFORMATION
  Report Type: Spontaneous
  Country: US (occurrence: US)
  Receive Date: 20180914
  Receipt Date: 20180914
  Transmission Date: 20181010
  Serious: No
  Sender: FDA-Public Use
  Company Number: None

PATIENT
  Age: 49 Year
  Sex: Male

DRUGS (1)
  1. HUMIRA [Suspect]
     Active Substance: ADALIMUMAB
     Indication: COLITIS ULCERATIVE
     Dosage: ?          OTHER FREQUENCY:FIRST DOSE;?
     Route: 058
     Dates: start: 20180817, end: 20180819

REACTIONS (3)
  - Hypoaesthesia [None]
  - Skin discolouration [None]
  - Pain in extremity [None]

NARRATIVE: CASE EVENT DATE: 20180819
